FAERS Safety Report 19846040 (Version 2)
Quarter: 2021Q3

REPORT INFORMATION
  Report Type: Spontaneous
  Country: JP (occurrence: JP)
  Receive Date: 20210917
  Receipt Date: 20210920
  Transmission Date: 20211014
  Serious: Yes (Hospitalization, Other)
  Sender: FDA-Public Use
  Company Number: JP-SA-2021SA304308

PATIENT
  Age: 39 Year
  Sex: Male

DRUGS (2)
  1. ELPLAT [Suspect]
     Active Substance: OXALIPLATIN
     Indication: GASTRIC CANCER
     Dosage: 100 MILLIGRAM/SQ. METER, ONCE IN THREE WEEKS (I.V. INFUSION SOLUTION (OXALIPLATIN) INJECTION)
     Route: 041
  2. TS?1 [Concomitant]
     Active Substance: GIMERACIL\OTERACIL\TEGAFUR

REACTIONS (1)
  - Pneumonia aspiration [Recovering/Resolving]
